FAERS Safety Report 4654649-1 (Version None)
Quarter: 2005Q2

REPORT INFORMATION
  Report Type: 
  Country: None (occurrence: None)
  Receive Date: 20050504
  Receipt Date: 20050504
  Transmission Date: 20051028
  Serious: No
  Sender: FDA-Public Use
  Company Number: None

PATIENT
  Age: 29 Year
  Sex: Female
  Weight: 58.9676 kg

DRUGS (1)
  1. WELLBUTRIN [Suspect]
     Indication: DEPRESSION

REACTIONS (3)
  - ERYTHEMA [None]
  - SWELLING FACE [None]
  - URTICARIA [None]
